FAERS Safety Report 23309590 (Version 1)
Quarter: 2023Q4

REPORT INFORMATION
  Report Type: Spontaneous
  Country: DE (occurrence: DE)
  Receive Date: 20231218
  Receipt Date: 20231218
  Transmission Date: 20240109
  Serious: Yes (Other)
  Sender: FDA-Public Use
  Company Number: None

PATIENT
  Weight: 79 kg

DRUGS (4)
  1. ENALAPRIL [Suspect]
     Active Substance: ENALAPRIL
     Indication: Hypertension
     Dosage: DAILY DOSE: 10 MG MILLGRAM(S) EVERY DAYS
     Route: 065
     Dates: start: 20131001
  2. CANDESARTAN CILEXETIL\HYDROCHLOROTHIAZIDE [Concomitant]
     Active Substance: CANDESARTAN CILEXETIL\HYDROCHLOROTHIAZIDE
     Indication: Hypertension
     Dosage: DAILY DOSE: 0.5 DF DOSAGE FORM EVERY DAYS,CANDESARTAN/HYDROCHLOROTHIAZID 32/12,5
     Dates: start: 20141028, end: 20141112
  3. CANDESARTAN CILEXETIL [Suspect]
     Active Substance: CANDESARTAN CILEXETIL
     Indication: Hypertension
     Dosage: BLOPRESS FORTE 32/12,5
     Route: 065
     Dates: start: 20131002, end: 20141027
  4. METOPROLOL [Concomitant]
     Active Substance: METOPROLOL
     Indication: Hypertension
     Dosage: DAILY DOSE: 0.5 DF DOSAGE FORM EVERY DAYS
     Dates: start: 20131001

REACTIONS (5)
  - Tendon disorder [Unknown]
  - Anaemia [Unknown]
  - Myalgia [Unknown]
  - Arthralgia [Unknown]
  - Thrombocytopenia [Unknown]
